FAERS Safety Report 7776292-8 (Version None)
Quarter: 2011Q3

REPORT INFORMATION
  Report Type: 
  Country: None (occurrence: None)
  Receive Date: 20110926
  Receipt Date: 20110915
  Transmission Date: 20111222
  Serious: Yes (Death, Life-Threatening, Hospitalization)
  Sender: FDA-Public Use
  Company Number: NL-JNJFOC-20110408457

PATIENT
  Sex: Male
  Weight: 93 kg

DRUGS (15)
  1. OXYCODONE HCL [Concomitant]
     Indication: CANCER PAIN
     Route: 048
     Dates: start: 20110210
  2. ABIRATERONE ACETATE [Suspect]
     Indication: PROSTATE CANCER METASTATIC
     Route: 048
     Dates: start: 20101029, end: 20110508
  3. PREDNISOLONE [Suspect]
     Route: 048
     Dates: start: 20101029
  4. EPREX [Concomitant]
     Indication: HAEMOGLOBIN DECREASED
     Route: 058
     Dates: start: 20101229
  5. RED BLOOD CELL TRANSFUSION [Concomitant]
     Indication: ANAEMIA
     Dosage: ONCE ONLY
     Route: 042
     Dates: start: 20110401, end: 20110401
  6. ZOMETA [Concomitant]
     Indication: METASTASES TO BONE
     Route: 042
     Dates: start: 20080101
  7. PREDNISOLONE [Suspect]
     Indication: PROSTATE CANCER METASTATIC
     Route: 048
  8. GOSERELIN [Concomitant]
     Route: 058
     Dates: start: 20020501
  9. ACETAMINOPHEN [Concomitant]
     Indication: CANCER PAIN
     Route: 048
     Dates: start: 20090721
  10. FUROSEMIDE [Concomitant]
     Route: 048
     Dates: start: 20100401, end: 20100901
  11. ABIRATERONE ACETATE [Suspect]
     Route: 048
  12. GOSERELIN [Concomitant]
     Indication: HORMONE THERAPY
     Route: 058
     Dates: start: 20090108
  13. MICROLAX [Concomitant]
     Indication: CONSTIPATION
     Route: 054
     Dates: start: 20100304
  14. FUROSEMIDE [Concomitant]
     Indication: OEDEMA
     Route: 048
     Dates: start: 20100901
  15. MS CONTIN [Concomitant]
     Indication: CANCER PAIN
     Route: 048
     Dates: start: 20110311, end: 20110331

REACTIONS (2)
  - BLOOD CREATININE INCREASED [None]
  - RENAL FAILURE [None]
